FAERS Safety Report 13426926 (Version 1)
Quarter: 2017Q2

REPORT INFORMATION
  Report Type: Spontaneous
  Country: US (occurrence: US)
  Receive Date: 20170411
  Receipt Date: 20170411
  Transmission Date: 20170830
  Serious: No
  Sender: FDA-Public Use
  Company Number: None

PATIENT
  Age: 13 Year
  Sex: Female

DRUGS (2)
  1. FLUORIDE [Suspect]
     Active Substance: SODIUM FLUORIDE
  2. CHLORHEXIDINE GLUCONATE. [Suspect]
     Active Substance: CHLORHEXIDINE GLUCONATE

REACTIONS (2)
  - Drug dispensing error [None]
  - Intercepted drug dispensing error [None]

NARRATIVE: CASE EVENT DATE: 2017
